FAERS Safety Report 24431053 (Version 1)
Quarter: 2024Q4

REPORT INFORMATION
  Report Type: Report from Study
  Country: US (occurrence: US)
  Receive Date: 20241014
  Receipt Date: 20241014
  Transmission Date: 20250114
  Serious: Yes (Death, Other)
  Sender: ALEXION PHARMACEUTICALS
  Company Number: US-AstraZeneca-CH-00719217A

PATIENT
  Age: 74 Year

DRUGS (4)
  1. BRILINTA [Suspect]
     Active Substance: TICAGRELOR
     Dosage: UNKNOWN
  2. BRILINTA [Suspect]
     Active Substance: TICAGRELOR
     Dosage: UNKNOWN
  3. BRILINTA [Suspect]
     Active Substance: TICAGRELOR
     Dosage: UNKNOWN
  4. BRILINTA [Suspect]
     Active Substance: TICAGRELOR
     Dosage: UNKNOWN

REACTIONS (1)
  - Death [Fatal]
